FAERS Safety Report 8338469-2 (Version None)
Quarter: 2012Q1

REPORT INFORMATION
  Report Type: 
  Country: None (occurrence: None)
  Receive Date: 20120329
  Receipt Date: 20081223
  Transmission Date: 20120608
  Serious: Yes (Other)
  Sender: FDA-Public Use
  Company Number: PHEH2008US08520

PATIENT
  Sex: Male

DRUGS (3)
  1. EXELON [Suspect]
     Indication: DEMENTIA ALZHEIMER'S TYPE
     Dosage: 4.6 MG, QD, TRANSDERMAL : 9.5 MG, QD
     Route: 062
     Dates: start: 20080811, end: 20080912
  2. EXELON [Suspect]
     Indication: DEMENTIA ALZHEIMER'S TYPE
     Dosage: 4.6 MG, QD, TRANSDERMAL : 9.5 MG, QD
     Route: 062
     Dates: start: 20080912, end: 20081008
  3. NAMENDA [Concomitant]

REACTIONS (4)
  - URINARY INCONTINENCE [None]
  - DRUG INEFFECTIVE [None]
  - CONFUSIONAL STATE [None]
  - POLLAKIURIA [None]
